FAERS Safety Report 7850588-3 (Version None)
Quarter: 2011Q4

REPORT INFORMATION
  Report Type: 
  Country: None (occurrence: None)
  Receive Date: 20111024
  Receipt Date: 20111011
  Transmission Date: 20120403
  Serious: Yes (Other)
  Sender: FDA-Public Use
  Company Number: 1077286

PATIENT
  Age: 58 Year
  Sex: Female

DRUGS (4)
  1. LEVOLEUCOVORIN CALCIUM [Suspect]
     Indication: CHEMOTHERAPY
     Dosage: 150 MG MILLIGRAM(S),   , INTRAVENOUS
     Route: 042
     Dates: start: 20110801, end: 20110802
  2. FLUOROURACIL [Suspect]
     Indication: CHEMOTHERAPY
     Dosage: 600 MG MILLIGRAM(S), , INTRAVENOUS
     Route: 042
     Dates: start: 20110801, end: 20110801
  3. OXALIPLATIN [Suspect]
     Indication: CHEMOTHERAPY
     Dosage: 130 MG MILLIGRAM(S),   , INTRAVENOUS
     Route: 042
     Dates: start: 20110801, end: 20110801
  4. CHLORPHENIRAMINE MALEATE [Concomitant]

REACTIONS (7)
  - STOMATITIS [None]
  - ALOPECIA [None]
  - NEUTROPENIA [None]
  - ASTHENIA [None]
  - NAUSEA [None]
  - PRESYNCOPE [None]
  - FALL [None]
